FAERS Safety Report 23198693 (Version 1)
Quarter: 2023Q4

REPORT INFORMATION
  Report Type: Spontaneous
  Country: GB (occurrence: GB)
  Receive Date: 20231117
  Receipt Date: 20231117
  Transmission Date: 20240109
  Serious: Yes (Other)
  Sender: FDA-Public Use
  Company Number: None

PATIENT
  Age: 74 Year
  Sex: Male
  Weight: 100 kg

DRUGS (7)
  1. ALLOPURINOL [Suspect]
     Active Substance: ALLOPURINOL
     Indication: Product used for unknown indication
     Dates: start: 20231023
  2. FEXOFENADINE [Concomitant]
     Active Substance: FEXOFENADINE HYDROCHLORIDE
     Indication: Urticaria
     Dates: start: 20231006
  3. FLUCLOXACILLIN [Concomitant]
     Active Substance: FLUCLOXACILLIN
     Dates: start: 20231006
  4. HYDROCORTISONE [Concomitant]
     Active Substance: HYDROCORTISONE
     Indication: Haemorrhoids
     Dosage: APPLY THINLY ONCE OR TWICE A DAY 2 WEEKS
     Dates: start: 20230908, end: 20231021
  5. CLOTRIMAZOLE [Concomitant]
     Active Substance: CLOTRIMAZOLE
     Indication: Haemorrhoids
     Dosage: APPLY THINLY ONCE OR TWICE A DAY 2 WEEKS
     Dates: start: 20230908, end: 20231021
  6. MENTHOL [Concomitant]
     Active Substance: MENTHOL
     Dosage: APPLY AS NEEDED
     Dates: start: 20231030
  7. PREDNISOLONE [Concomitant]
     Active Substance: PREDNISOLONE
     Dosage: WEAN DOWN AS PLAN
     Dates: start: 20231030

REACTIONS (1)
  - Pemphigoid [Unknown]
